FAERS Safety Report 16785756 (Version 2)
Quarter: 2019Q4

REPORT INFORMATION
  Report Type: Spontaneous
  Country: PR (occurrence: PR)
  Receive Date: 20190909
  Receipt Date: 20191003
  Transmission Date: 20200122
  Serious: Yes (Other)
  Sender: FDA-Public Use
  Company Number: PR-PFIZER INC-2019385298

PATIENT
  Age: 62 Year
  Sex: Female
  Weight: 61.22 kg

DRUGS (1)
  1. IBRANCE [Suspect]
     Active Substance: PALBOCICLIB
     Indication: BREAST CANCER FEMALE
     Dosage: 125 MG, CYCLIC
     Route: 048
     Dates: start: 20190823

REACTIONS (4)
  - White blood cell count decreased [Unknown]
  - Stomatitis [Unknown]
  - Headache [Unknown]
  - Pain [Unknown]

NARRATIVE: CASE EVENT DATE: 20190904
